FAERS Safety Report 4510209-4 (Version None)
Quarter: 2004Q4

REPORT INFORMATION
  Report Type: 
  Country: None (occurrence: None)
  Receive Date: 20041119
  Receipt Date: 20041117
  Transmission Date: 20050328
  Serious: Yes (Other)
  Sender: FDA-Public Use
  Company Number: 200413091GDS

PATIENT
  Age: 86 Year
  Sex: Female

DRUGS (1)
  1. ASPIRIN [Suspect]
     Dosage: ORAL
     Route: 048

REACTIONS (23)
  - ACTIVATED PARTIAL THROMBOPLASTIN TIME PROLONGED [None]
  - BLOOD ALKALINE PHOSPHATASE INCREASED [None]
  - DRUG INTERACTION [None]
  - HAEMATOMA [None]
  - HAEMOGLOBIN DECREASED [None]
  - HAEMORRHAGE [None]
  - HAEMORRHAGIC DIATHESIS [None]
  - HYPERPARATHYROIDISM [None]
  - HYPERPLASIA [None]
  - LARYNGEAL OEDEMA [None]
  - LOCAL SWELLING [None]
  - NASOPHARYNGEAL DISORDER [None]
  - NECROSIS [None]
  - OBSTRUCTIVE AIRWAYS DISORDER [None]
  - PARATHYROID DISORDER [None]
  - PLATELET COUNT DECREASED [None]
  - PROTHROMBIN TIME PROLONGED [None]
  - PURPURA [None]
  - RED BLOOD CELL COUNT DECREASED [None]
  - TENDERNESS [None]
  - THROMBOSIS [None]
  - THYROID DISORDER [None]
  - TRACHEAL DISORDER [None]
